FAERS Safety Report 5377292-8 (Version None)
Quarter: 2007Q3

REPORT INFORMATION
  Report Type: 
  Country: None (occurrence: None)
  Receive Date: 20070703
  Receipt Date: 20070622
  Transmission Date: 20080115
  Serious: Yes (Hospitalization, Other)
  Sender: FDA-Public Use
  Company Number: US-ROCHE-467340

PATIENT
  Age: 26 Year
  Sex: Male
  Weight: 73.9 kg

DRUGS (8)
  1. ACCUTANE [Suspect]
     Indication: ACNE
     Route: 048
     Dates: start: 19980331, end: 19980430
  2. ACCUTANE [Suspect]
     Route: 048
     Dates: start: 19980714, end: 19990101
  3. ZITHROMAX [Concomitant]
     Dosage: GENERIC REPORTED AS ZITHROMAX.
     Route: 048
     Dates: start: 19980714
  4. ACCUPRIL [Concomitant]
     Route: 048
     Dates: start: 19980826
  5. PERCOCET [Concomitant]
     Dosage: GENERIC REPORTED AS OXYCODONE W/APAP.  STRENGTH REPORTED AS 5/325.
     Route: 048
     Dates: start: 19981007
  6. TRIAMCINOLONE [Concomitant]
     Route: 061
     Dates: start: 19981021
  7. LIBRAX [Concomitant]
     Route: 048
     Dates: start: 19981228
  8. FLUMADINE [Concomitant]
     Route: 048
     Dates: start: 19981228

REACTIONS (8)
  - COLITIS [None]
  - COLITIS ULCERATIVE [None]
  - COLONIC POLYP [None]
  - FEELING OF DESPAIR [None]
  - HAEMORRHOIDS [None]
  - HEADACHE [None]
  - INFLAMMATORY BOWEL DISEASE [None]
  - IRRITABLE BOWEL SYNDROME [None]
